FAERS Safety Report 8862720 (Version 1)
Quarter: 2012Q4

REPORT INFORMATION
  Report Type: 
  Country: US (occurrence: US)
  Receive Date: 20121026
  Receipt Date: 20121026
  Transmission Date: 20130627
  Serious: Yes (Life-Threatening)
  Sender: FDA-Public Use
  Company Number: US-PFIZER INC-ALA2012114092

PATIENT
  Age: 14 Year
  Sex: Male

DRUGS (4)
  1. EMERGEN-C [Suspect]
     Dosage: 1 packet, 5 times a week
  2. ADVIL [Suspect]
     Dosage: UNK
  3. PREDNISONE [Concomitant]
     Dosage: UNK
  4. PEPCID [Concomitant]
     Dosage: UNK

REACTIONS (6)
  - Drug administered to patient of inappropriate age [Unknown]
  - Eye swelling [Recovered/Resolved]
  - Swollen tongue [Recovered/Resolved]
  - Lip swelling [Recovering/Resolving]
  - Urticaria [Recovered/Resolved]
  - Hypersensitivity [Recovering/Resolving]
